FAERS Safety Report 4917854-2 (Version None)
Quarter: 2006Q1

REPORT INFORMATION
  Report Type: 
  Country: None (occurrence: None)
  Receive Date: 20060221
  Receipt Date: 20051128
  Transmission Date: 20060701
  Serious: Yes (Congenital Anomaly)
  Sender: FDA-Public Use
  Company Number: US-ABBOTT-05P-163-0318142-00

PATIENT
  Sex: Male
  Weight: 2.996 kg

DRUGS (17)
  1. RITONAVIR SOFT GELATIN CAPSULES [Suspect]
     Indication: HIV INFECTION
     Route: 064
     Dates: start: 20041117, end: 20050308
  2. TMC114 [Concomitant]
     Indication: HIV INFECTION
     Route: 064
     Dates: start: 20041117, end: 20050308
  3. TENOFOVIR [Concomitant]
     Indication: DRUG USE FOR UNKNOWN INDICATION
     Route: 064
     Dates: start: 20041201
  4. ZIDOVUDINE [Concomitant]
     Indication: HIV INFECTION
     Route: 064
     Dates: start: 20041201
  5. LISINOPRIL [Concomitant]
     Indication: HYPERTENSION
     Route: 064
  6. METOPROLOL SUCCINATE [Concomitant]
     Indication: HYPERTENSION
     Route: 064
     Dates: start: 20030122
  7. PREDNISONE [Concomitant]
     Indication: ADRENAL INSUFFICIENCY
     Route: 064
     Dates: start: 20030211
  8. DAPSONE [Concomitant]
     Indication: ANTIBIOTIC PROPHYLAXIS
     Route: 064
  9. ACETAMINOPHEN [Concomitant]
     Indication: HEADACHE
     Route: 064
  10. ACETAMINOPHEN [Concomitant]
     Route: 064
  11. ZITHROMAX [Concomitant]
     Indication: PROPHYLAXIS
     Route: 064
     Dates: start: 20041110
  12. ZITHROMAX [Concomitant]
     Route: 064
  13. SALBUTAMOL [Concomitant]
     Indication: COUGH
     Route: 064
     Dates: start: 20050122
  14. ZYCAM [Concomitant]
     Indication: COUGH
     Route: 064
     Dates: start: 20050121
  15. DIPHENHYDRAMINE HYDROCHLORIDE [Concomitant]
     Indication: RASH
     Route: 064
     Dates: start: 20050302
  16. LEXIVA [Concomitant]
     Indication: HIV INFECTION
     Route: 064
  17. LAMIVUDINE AND ZIDOVUDINE [Concomitant]
     Indication: HIV INFECTION
     Route: 064

REACTIONS (1)
  - MICROGNATHIA [None]
